FAERS Safety Report 8216805-5 (Version None)
Quarter: 2012Q1

REPORT INFORMATION
  Report Type: 
  Country: None (occurrence: None)
  Receive Date: 20120316
  Receipt Date: 20120308
  Transmission Date: 20120608
  Serious: Yes (Hospitalization)
  Sender: FDA-Public Use
  Company Number: FR-MERCK-1203USA01333

PATIENT
  Age: 45 Year
  Sex: Female

DRUGS (24)
  1. CANCIDAS [Suspect]
     Route: 042
     Dates: start: 20111018, end: 20111024
  2. PROGRAF [Concomitant]
     Dosage: 2-8 MG
     Route: 042
     Dates: start: 20111009
  3. FELODIPINE [Concomitant]
     Route: 048
  4. PANTOPRAZOLE [Concomitant]
     Route: 065
     Dates: start: 20111007
  5. NICARDIPINE HYDROCHLORIDE [Concomitant]
     Route: 065
     Dates: start: 20111009
  6. SOMATOSTATIN [Concomitant]
     Route: 048
     Dates: start: 20111024, end: 20111028
  7. ACETYLCYSTEINE [Concomitant]
     Route: 065
     Dates: start: 20111007
  8. ATARAX [Concomitant]
     Route: 065
     Dates: start: 20111007
  9. CIPROFLOXACIN HCL [Concomitant]
     Route: 065
  10. CALCIPARINE [Concomitant]
     Route: 058
     Dates: start: 20111009
  11. PIPERACILLIN AND TAZOBACTAM [Concomitant]
     Dosage: 12 GBQ
     Route: 042
     Dates: start: 20111024
  12. PIPERACILLIN [Concomitant]
     Route: 065
     Dates: start: 20111007
  13. MORPHINE [Concomitant]
     Route: 065
     Dates: start: 20111007
  14. SIMULECT [Concomitant]
     Route: 065
     Dates: start: 20111007
  15. VALGANCICLOVIR [Suspect]
     Route: 048
     Dates: start: 20111009, end: 20111031
  16. MYCOPHENOLATE MOFETIL (CELLCEPT) [Suspect]
     Route: 048
     Dates: start: 20111007, end: 20111031
  17. ACUPAN [Concomitant]
     Route: 065
     Dates: start: 20111007
  18. LANSOPRAZOLE [Concomitant]
     Route: 048
     Dates: start: 20111024, end: 20111028
  19. LASIX [Concomitant]
     Dosage: 20-500 MG
     Route: 042
     Dates: start: 20111009, end: 20111028
  20. ATACAND [Concomitant]
     Route: 048
  21. METOPROLOL FUMARATE [Concomitant]
     Route: 048
  22. GESTODENE AND ETHINYL ESTRADIOL [Concomitant]
     Route: 048
  23. CHOLECALCIFEROL [Concomitant]
     Route: 048
  24. PROPOFOL [Concomitant]
     Dosage: PER HOUR
     Route: 065
     Dates: start: 20111007, end: 20111009

REACTIONS (3)
  - LEUKOPENIA [None]
  - LYMPHOPENIA [None]
  - NEUTROPENIA [None]
